FAERS Safety Report 8643797 (Version 2)
Quarter: 2013Q2

REPORT INFORMATION
  Report Type: Spontaneous
  Country: US (occurrence: US)
  Receive Date: 20120629
  Receipt Date: 20130405
  Transmission Date: 20140414
  Serious: Yes (Congenital Anomaly, Other)
  Sender: FDA-Public Use
  Company Number: US-PFIZER INC-2012153833

PATIENT
  Sex: Female

DRUGS (3)
  1. ZOLOFT [Suspect]
     Dosage: UNK
     Route: 064
     Dates: start: 200706, end: 200805
  2. ZOLOFT [Suspect]
     Dosage: UNK
     Route: 064
     Dates: start: 201008, end: 201104
  3. EXCEDRIN MIGRAINE [Concomitant]
     Dosage: UNK
     Route: 064

REACTIONS (2)
  - Maternal exposure timing unspecified [Not Recovered/Not Resolved]
  - Cleft lip and palate [Not Recovered/Not Resolved]
